FAERS Safety Report 6015604-2 (Version None)
Quarter: 2008Q4

REPORT INFORMATION
  Report Type: 
  Country: None (occurrence: None)
  Receive Date: 20081218
  Receipt Date: 20081202
  Transmission Date: 20090506
  Serious: Yes (Other)
  Sender: FDA-Public Use
  Company Number: DE-1168089

PATIENT
  Sex: Female

DRUGS (1)
  1. FLUORESCITE [Suspect]
     Route: 040

REACTIONS (4)
  - BLOOD PRESSURE INCREASED [None]
  - DIZZINESS [None]
  - RESTLESSNESS [None]
  - TREMOR [None]
